FAERS Safety Report 21563118 (Version 1)
Quarter: 2022Q4

REPORT INFORMATION
  Report Type: Spontaneous
  Country: US (occurrence: US)
  Receive Date: 20221107
  Receipt Date: 20221107
  Transmission Date: 20230113
  Serious: No
  Sender: FDA-Public Use
  Company Number: US-SA-SAC20221102000879

PATIENT
  Sex: Male

DRUGS (1)
  1. DUPIXENT [Suspect]
     Active Substance: DUPILUMAB
     Indication: Dermatitis atopic
     Dosage: 300 MG, QOW
     Route: 058

REACTIONS (10)
  - Back pain [Unknown]
  - Eosinophilic oesophagitis [Unknown]
  - Aphthous ulcer [Unknown]
  - Lichenoid keratosis [Unknown]
  - Dermatitis contact [Unknown]
  - Hepatic enzyme increased [Unknown]
  - Skin ulcer [Unknown]
  - Pain in extremity [Unknown]
  - Herpes zoster [Unknown]
  - Oral herpes [Unknown]
